FAERS Safety Report 13735957 (Version 1)
Quarter: 2017Q3

REPORT INFORMATION
  Report Type: Spontaneous
  Country: US (occurrence: US)
  Receive Date: 20170707
  Receipt Date: 20170707
  Transmission Date: 20171127
  Serious: No
  Sender: FDA-Public Use
  Company Number: None

PATIENT
  Age: 68 Year
  Sex: Female

DRUGS (12)
  1. HYDROCHLOROTHIAZIDE. [Concomitant]
     Active Substance: HYDROCHLOROTHIAZIDE
  2. METOPROLOL. [Concomitant]
     Active Substance: METOPROLOL
  3. SYNTHROID [Concomitant]
     Active Substance: LEVOTHYROXINE SODIUM
  4. SIMVASTATIN. [Concomitant]
     Active Substance: SIMVASTATIN
  5. BACLOFEN. [Concomitant]
     Active Substance: BACLOFEN
  6. CLOPIDOGREL [Concomitant]
     Active Substance: CLOPIDOGREL BISULFATE
  7. AMANTADINE. [Concomitant]
     Active Substance: AMANTADINE HYDROCHLORIDE
  8. NITROSTAT [Concomitant]
     Active Substance: NITROGLYCERIN
  9. AMPYRA [Suspect]
     Active Substance: DALFAMPRIDINE
     Dosage: 10MG 1/2 TAB Q24H ORAL
     Route: 048
     Dates: start: 201109
  10. VITAMIN B12 [Concomitant]
     Active Substance: CYANOCOBALAMIN
  11. ASPIRIN. [Concomitant]
     Active Substance: ASPIRIN
  12. TROSPIUM [Concomitant]
     Active Substance: TROSPIUM

REACTIONS (7)
  - Off label use [None]
  - Gait disturbance [None]
  - Balance disorder [None]
  - Wrong technique in product usage process [None]
  - Renal impairment [None]
  - Creatinine renal clearance decreased [None]
  - Dizziness [None]

NARRATIVE: CASE EVENT DATE: 20170707
